FAERS Safety Report 6532443-4 (Version None)
Quarter: 2010Q1

REPORT INFORMATION
  Report Type: 
  Country: None (occurrence: None)
  Receive Date: 20100111
  Receipt Date: 20091231
  Transmission Date: 20100710
  Serious: Yes (Other)
  Sender: FDA-Public Use
  Company Number: US-RANBAXY-2009RR-30250

PATIENT
  Age: 59 Year
  Sex: Male

DRUGS (2)
  1. FLUOXETINE [Suspect]
     Indication: DEPRESSION
     Dosage: 40 MG, QD
  2. BUPROPION HCL [Concomitant]
     Indication: DEPRESSION

REACTIONS (1)
  - RAPID EYE MOVEMENTS SLEEP ABNORMAL [None]
